FAERS Safety Report 8902835 (Version 2)
Quarter: 2012Q4

REPORT INFORMATION
  Report Type: 
  Country: US (occurrence: US)
  Receive Date: 20121112
  Receipt Date: 20121119
  Transmission Date: 20130627
  Serious: Yes (Other)
  Sender: FDA-Public Use
  Company Number: US-JNJFOC-20121103628

PATIENT
  Age: 50 Year
  Sex: Female

DRUGS (5)
  1. REMICADE [Suspect]
     Indication: CROHN^S DISEASE
     Dosage: 5 mg/kg
     Route: 042
  2. REMICADE [Suspect]
     Indication: CROHN^S DISEASE
     Route: 042
  3. BENADRYL [Suspect]
     Indication: PREMEDICATION
     Route: 048
  4. TYLENOL [Suspect]
     Route: 048
  5. TYLENOL [Suspect]
     Indication: PREMEDICATION
     Route: 048

REACTIONS (2)
  - Arthralgia [Unknown]
  - Drug ineffective for unapproved indication [Unknown]
